FAERS Safety Report 17099478 (Version 3)
Quarter: 2019Q4

REPORT INFORMATION
  Report Type: Spontaneous
  Country: US (occurrence: US)
  Receive Date: 20191202
  Receipt Date: 20191210
  Transmission Date: 20200122
  Serious: No
  Sender: FDA-Public Use
  Company Number: US-PFIZER INC-2019513836

PATIENT
  Age: 14 Year
  Sex: Male

DRUGS (4)
  1. CLONIDINE. [Concomitant]
     Active Substance: CLONIDINE
     Indication: ANXIETY
     Dosage: 1 MG, DAILY (A DAY)
  2. METHYLPHENIDATE. [Concomitant]
     Active Substance: METHYLPHENIDATE
     Indication: ATTENTION DEFICIT/HYPERACTIVITY DISORDER
     Dosage: 50 MG, DAILY (A DAY)
  3. GENOTROPIN [Suspect]
     Active Substance: SOMATROPIN
     Dosage: 1.4
  4. GENOTROPIN [Suspect]
     Active Substance: SOMATROPIN
     Indication: BODY HEIGHT BELOW NORMAL
     Dosage: 1.5 MG, 1X/DAY
     Dates: start: 20191118

REACTIONS (6)
  - Screaming [Unknown]
  - Mood altered [Unknown]
  - Anger [Not Recovered/Not Resolved]
  - Product prescribing error [Unknown]
  - Irritability [Unknown]
  - Aggression [Unknown]

NARRATIVE: CASE EVENT DATE: 20191119
